FAERS Safety Report 6293512-X (Version None)
Quarter: 2009Q3

REPORT INFORMATION
  Report Type: 
  Country: None (occurrence: None)
  Receive Date: 20090803
  Receipt Date: 20090721
  Transmission Date: 20100115
  Serious: Yes (Hospitalization, Other)
  Sender: FDA-Public Use
  Company Number: GB-RANBAXY-2009RR-24859

PATIENT
  Age: 7 Year
  Sex: Female

DRUGS (2)
  1. IBUPROFEN [Suspect]
     Indication: PYREXIA
     Dosage: 100 MG, SINGLE
  2. FLUCLOXACILLIN [Concomitant]
     Indication: LOWER RESPIRATORY TRACT INFECTION

REACTIONS (2)
  - RENAL FAILURE ACUTE [None]
  - RENAL TUBULAR NECROSIS [None]
